FAERS Safety Report 5830835-X (Version None)
Quarter: 2008Q3

REPORT INFORMATION
  Report Type: 
  Country: None (occurrence: None)
  Receive Date: 20080801
  Receipt Date: 20071220
  Transmission Date: 20090109
  Serious: No
  Sender: FDA-Public Use
  Company Number: US-BRISTOL-MYERS SQUIBB COMPANY-14021679

PATIENT
  Sex: Male
  Weight: 78 kg

DRUGS (6)
  1. COUMADIN [Suspect]
     Indication: ATRIAL FIBRILLATION
     Dosage: 23 MG/ WEEK WITH VARYING DAILY DOSES FOR 10 YEARS.
     Route: 048
  2. TOPROL-XL [Concomitant]
  3. DOXYCYCLINE HCL [Concomitant]
  4. MULTI-VITAMIN [Concomitant]
  5. CALCIUM + VITAMIN D [Concomitant]
  6. ASCORBIC ACID [Concomitant]

REACTIONS (1)
  - INTERNATIONAL NORMALISED RATIO FLUCTUATION [None]
